FAERS Safety Report 10705649 (Version 1)
Quarter: 2015Q1

REPORT INFORMATION
  Report Type: Spontaneous
  Country: US (occurrence: US)
  Receive Date: 20150112
  Receipt Date: 20150112
  Transmission Date: 20150721
  Serious: No
  Sender: FDA-Public Use
  Company Number: US-GLAXOSMITHKLINE-A1087888A

PATIENT

DRUGS (1)
  1. PROMACTA [Suspect]
     Active Substance: ELTROMBOPAG OLAMINE
     Indication: THROMBOCYTOPENIA
     Dosage: 25 MG TABLET
     Route: 048
     Dates: start: 20131107

REACTIONS (3)
  - Asthenia [Unknown]
  - Presyncope [Unknown]
  - Fatigue [Unknown]

NARRATIVE: CASE EVENT DATE: 20140822
